FAERS Safety Report 10435340 (Version 2)
Quarter: 2014Q3

REPORT INFORMATION
  Report Type: Report from Study
  Country: BR (occurrence: BR)
  Receive Date: 20140908
  Receipt Date: 20140923
  Transmission Date: 20150326
  Serious: Yes (Other)
  Sender: FDA-Public Use
  Company Number: BR-ROCHE-1457460

PATIENT
  Age: 45 Year
  Sex: Female
  Weight: 90 kg

DRUGS (4)
  1. BROMAZEPAM [Concomitant]
     Active Substance: BROMAZEPAM
  2. METHOTREXATE [Concomitant]
     Active Substance: METHOTREXATE
  3. BUPROPION [Concomitant]
     Active Substance: BUPROPION
  4. ACTEMRA [Suspect]
     Active Substance: TOCILIZUMAB
     Indication: RHEUMATOID ARTHRITIS
     Dosage: LATEST INFUSION ON 14 AUG 2014.
     Route: 042
     Dates: start: 20140714

REACTIONS (2)
  - Leukopenia [Recovered/Resolved]
  - Oxygen saturation decreased [Unknown]

NARRATIVE: CASE EVENT DATE: 20140812
